FAERS Safety Report 7494177-1 (Version None)
Quarter: 2011Q2

REPORT INFORMATION
  Report Type: 
  Country: None (occurrence: None)
  Receive Date: 20110520
  Receipt Date: 20110516
  Transmission Date: 20111010
  Serious: Yes (Hospitalization, Disabling)
  Sender: FDA-Public Use
  Company Number: AU-ROXANE LABORATORIES, INC.-2011-RO-00664RO

PATIENT
  Age: 29 Year
  Sex: Male

DRUGS (2)
  1. DIAZEPAM [Suspect]
     Indication: INSOMNIA
     Dosage: 75 MG
  2. VALPROIC ACID [Suspect]
     Indication: BIPOLAR DISORDER
     Dosage: 4 G

REACTIONS (4)
  - ENCEPHALOPATHY [None]
  - INTENTIONAL OVERDOSE [None]
  - BRAIN OEDEMA [None]
  - CEREBRAL INFARCTION [None]
